FAERS Safety Report 8396328-3 (Version None)
Quarter: 2012Q2

REPORT INFORMATION
  Report Type: 
  Country: None (occurrence: None)
  Receive Date: 20120530
  Receipt Date: 20120518
  Transmission Date: 20120825
  Serious: Yes (Hospitalization, Other)
  Sender: FDA-Public Use
  Company Number: US-ELI_LILLY_AND_COMPANY-US201104000831

PATIENT
  Sex: Female
  Weight: 62.13 kg

DRUGS (25)
  1. FORTEO [Suspect]
     Dosage: 20 UG, QD
     Route: 058
  2. ADVAIR DISKUS 100/50 [Concomitant]
     Dosage: UNK
  3. FORTEO [Suspect]
     Dosage: 20 UG, QD
     Route: 058
  4. FORTEO [Suspect]
     Dosage: 20 UG, QD
     Route: 058
  5. SENNA SPP. [Concomitant]
     Dosage: UNK
  6. DIAZEPAM [Concomitant]
     Dosage: UNK
  7. FORTEO [Suspect]
     Dosage: 20 UG, QD
     Dates: start: 20110301
  8. VERAPAMIL HCL [Concomitant]
     Dosage: UNK
  9. ANASTROZOLE [Concomitant]
     Dosage: UNK
  10. PREDNISONE TAB [Concomitant]
     Dosage: UNK
  11. MULTI-VITAMIN [Concomitant]
     Dosage: UNK
  12. FLUOROMETHOLONE [Concomitant]
     Dosage: UNK
  13. OXYCONTIN [Concomitant]
     Dosage: UNK
  14. CYMBALTA [Suspect]
     Dosage: 60 MG, QD
  15. ALBUTEROL [Concomitant]
     Dosage: UNK
  16. FORTEO [Suspect]
     Dosage: 20 UG, QD
     Route: 058
     Dates: end: 20110610
  17. CYMBALTA [Suspect]
     Dosage: 30 MG, QD
  18. WELLBUTRIN [Concomitant]
     Indication: DEPRESSION
  19. OMEPRAZOLE [Concomitant]
     Dosage: UNK
  20. OSCAL D [Concomitant]
     Dosage: UNK
  21. FORTEO [Suspect]
     Indication: OSTEOPOROSIS
     Dosage: 20 UG, QD
     Route: 058
  22. CYMBALTA [Suspect]
     Indication: DEPRESSION
     Dosage: 30 MG, QD
     Dates: start: 20110913
  23. PREVACID [Concomitant]
     Dosage: UNK
  24. METOPROLOL TARTRATE [Concomitant]
     Dosage: UNK
  25. GENTEAL [Concomitant]
     Dosage: UNK

REACTIONS (24)
  - INTERVERTEBRAL DISC DEGENERATION [None]
  - SPINAL FUSION SURGERY [None]
  - PRESYNCOPE [None]
  - VISION BLURRED [None]
  - CRYING [None]
  - ARTHRALGIA [None]
  - MUSCLE SPASMS [None]
  - DEPRESSION [None]
  - DRUG INEFFECTIVE [None]
  - MOBILITY DECREASED [None]
  - FATIGUE [None]
  - VISUAL IMPAIRMENT [None]
  - SLEEP APNOEA SYNDROME [None]
  - NAUSEA [None]
  - BONE PAIN [None]
  - INTENTIONAL DRUG MISUSE [None]
  - INJECTION SITE HAEMATOMA [None]
  - FOREIGN BODY [None]
  - SOMNOLENCE [None]
  - FOOD AVERSION [None]
  - INJECTION SITE SCAB [None]
  - DIZZINESS [None]
  - BACK PAIN [None]
  - NERVE COMPRESSION [None]
